FAERS Safety Report 9293675 (Version 1)
Quarter: 2013Q2

REPORT INFORMATION
  Report Type: Spontaneous
  Country: US (occurrence: US)
  Receive Date: 20130516
  Receipt Date: 20130516
  Transmission Date: 20140414
  Serious: No
  Sender: FDA-Public Use
  Company Number: US-009507513-1305USA004830

PATIENT
  Sex: Male

DRUGS (6)
  1. VICTRELIS [Suspect]
     Indication: HEPATITIS C
     Dosage: 800 MG, TID
     Route: 048
     Dates: start: 20130225
  2. PEG-INTRON [Suspect]
  3. RIBASPHERE [Suspect]
  4. NORVASC [Concomitant]
  5. MICARDIS [Concomitant]
  6. IBUPROFEN [Concomitant]

REACTIONS (1)
  - Urine flow decreased [Recovering/Resolving]
